FAERS Safety Report 19633543 (Version 1)
Quarter: 2021Q3

REPORT INFORMATION
  Report Type: Spontaneous
  Country: US (occurrence: US)
  Receive Date: 20210729
  Receipt Date: 20210729
  Transmission Date: 20211014
  Serious: Yes (Other)
  Sender: FDA-Public Use
  Company Number: None

PATIENT
  Age: 26 Year
  Sex: Female

DRUGS (11)
  1. PROGESTERONE. [Concomitant]
     Active Substance: PROGESTERONE
  2. DOXYCYCLINE HYCLATE. [Concomitant]
     Active Substance: DOXYCYCLINE HYCLATE
  3. ESTRADIOL. [Concomitant]
     Active Substance: ESTRADIOL
  4. GANIRELIX [Concomitant]
     Active Substance: GANIRELIX
  5. PROGESTERONE. [Concomitant]
     Active Substance: PROGESTERONE
  6. FOLLISTIM AQ [Suspect]
     Active Substance: FOLLITROPIN
     Indication: INFERTILITY
     Dosage: ?          OTHER STRENGTH:300/0.36 IU/ML;?
     Dates: start: 20210513
  7. LEUPROLIDE [Concomitant]
     Active Substance: LEUPROLIDE
  8. HCG [Concomitant]
     Active Substance: GONADOTROPHIN, CHORIONIC
  9. ENDOMETRIN [Concomitant]
     Active Substance: PROGESTERONE
  10. METHYLPREDNISOLONE. [Concomitant]
     Active Substance: METHYLPREDNISOLONE
  11. MENOPUR [Concomitant]
     Active Substance: FOLLITROPIN\LUTEINIZING HORMONE

REACTIONS (2)
  - Maternal drugs affecting foetus [None]
  - Maternal exposure timing unspecified [None]

NARRATIVE: CASE EVENT DATE: 20210728
